FAERS Safety Report 7702320-1 (Version None)
Quarter: 2011Q3

REPORT INFORMATION
  Report Type: 
  Country: None (occurrence: None)
  Receive Date: 20110822
  Receipt Date: 20110811
  Transmission Date: 20111222
  Serious: Yes (Other)
  Sender: FDA-Public Use
  Company Number: PHHY2011CH72686

PATIENT
  Age: 32 Year
  Sex: Female

DRUGS (2)
  1. CIPROFLOXACIN [Suspect]
     Dosage: 500 MG, BID
     Dates: start: 20100715, end: 20100725
  2. MEFENAMIC ACID [Suspect]
     Dates: start: 20100701, end: 20100701

REACTIONS (2)
  - MATERNAL EXPOSURE DURING PREGNANCY [None]
  - SELECTIVE ABORTION [None]
